FAERS Safety Report 4929174-0 (Version None)
Quarter: 2006Q1

REPORT INFORMATION
  Report Type: 
  Country: None (occurrence: None)
  Receive Date: 20060301
  Receipt Date: 20051115
  Transmission Date: 20060701
  Serious: Yes (Hospitalization)
  Sender: FDA-Public Use
  Company Number: US-MERCK-0511USA02556

PATIENT
  Age: 64 Year
  Sex: Female
  Weight: 57 kg

DRUGS (14)
  1. VIOXX [Suspect]
     Indication: ARTHRITIS
     Route: 048
     Dates: start: 19990927, end: 20040819
  2. CEPHALEXIN [Concomitant]
     Route: 065
  3. DOXAZOSIN MESYLATE [Concomitant]
     Route: 065
  4. TRAMADOL HYDROCHLORIDE [Concomitant]
     Route: 065
  5. PROMETHAZINE [Concomitant]
     Route: 065
  6. HYDROCODONE HYDROCHLORIDE [Concomitant]
     Route: 065
  7. VICOPROFEN [Concomitant]
     Route: 065
  8. LIPITOR [Concomitant]
     Route: 065
  9. AMOXICILLIN [Concomitant]
     Route: 065
  10. BUTALBITAL [Concomitant]
     Route: 065
  11. TIZANIDINE HYDROCHLORIDE [Concomitant]
     Route: 065
  12. ASPIRIN [Concomitant]
     Route: 065
  13. PLAVIX [Concomitant]
     Route: 065
  14. [THERAPY UNSPECIFIED] [Concomitant]
     Route: 065

REACTIONS (8)
  - ABDOMINAL PAIN [None]
  - ANXIETY [None]
  - BENIGN NEOPLASM [None]
  - CEREBROVASCULAR ACCIDENT [None]
  - ENDARTERECTOMY [None]
  - HYPERCHOLESTEROLAEMIA [None]
  - HYPERTENSION [None]
  - HYSTERECTOMY [None]
